FAERS Safety Report 8007443-8 (Version None)
Quarter: 2011Q4

REPORT INFORMATION
  Report Type: 
  Country: None (occurrence: None)
  Receive Date: 20111123
  Receipt Date: 20110927
  Transmission Date: 20120403
  Serious: No
  Sender: FDA-Public Use
  Company Number: 336656

PATIENT
  Age: 54 Year
  Sex: Female

DRUGS (1)
  1. VICTOZA [Suspect]
     Indication: TYPE 2 DIABETES MELLITUS
     Dosage: 1.2 MG,QD,SUBCUTANEOUS; 0.6 MG,QD,SUBCUTANEOUS
     Route: 058

REACTIONS (2)
  - ABDOMINAL PAIN [None]
  - ABDOMINAL DISCOMFORT [None]
